FAERS Safety Report 15920683 (Version 1)
Quarter: 2019Q1

REPORT INFORMATION
  Report Type: Other
  Country: US (occurrence: US)
  Receive Date: 20190205
  Receipt Date: 20190205
  Transmission Date: 20190417
  Serious: No
  Sender: FDA-Public Use
  Company Number: US-MAYNE PHARMA-2018MYN000634

PATIENT

DRUGS (1)
  1. LEVORA [Suspect]
     Active Substance: ETHINYL ESTRADIOL\LEVONORGESTREL
     Indication: ORAL CONTRACEPTION
     Dosage: UNK, QD
     Route: 048

REACTIONS (4)
  - Product packaging issue [Unknown]
  - Product measured potency issue [Unknown]
  - Breast tenderness [Unknown]
  - Breast pain [Unknown]
